FAERS Safety Report 13731751 (Version 3)
Quarter: 2018Q4

REPORT INFORMATION
  Report Type: Spontaneous
  Country: US (occurrence: US)
  Receive Date: 20170707
  Receipt Date: 20181129
  Transmission Date: 20190204
  Serious: Yes (Other)
  Sender: FDA-Public Use
  Company Number: US-PFIZER INC-2017283134

PATIENT
  Age: 16 Year
  Sex: Female

DRUGS (3)
  1. PAMIDRONATE DISODIUM. [Suspect]
     Active Substance: PAMIDRONATE DISODIUM
     Dosage: 1 MG/KG, UNK (GIVEN AS A SINGLE INFUSION AT 3-MONTH INTERVALS)
     Route: 042
  2. PAMIDRONATE DISODIUM. [Suspect]
     Active Substance: PAMIDRONATE DISODIUM
     Dosage: 11 MG/KG, UNK (OVER A 2-YEAR TREATMENT PERIOD) (TOTAL DOSE)
     Route: 042
  3. PAMIDRONATE DISODIUM. [Suspect]
     Active Substance: PAMIDRONATE DISODIUM
     Indication: OSTEOPOROSIS
     Dosage: 1 MG/KG, UNK (OVER 3 CONSECUTIVE DAYS AT 4-MONTH INTERVALS)
     Route: 042

REACTIONS (1)
  - Femur fracture [Recovered/Resolved]
